FAERS Safety Report 7268368-9 (Version None)
Quarter: 2011Q1

REPORT INFORMATION
  Report Type: 
  Country: None (occurrence: None)
  Receive Date: 20110201
  Receipt Date: 20110128
  Transmission Date: 20110831
  Serious: Yes (Hospitalization)
  Sender: FDA-Public Use
  Company Number: CH-ABBOTT-11P-151-0701250-00

PATIENT
  Age: 69 Year
  Sex: Female

DRUGS (11)
  1. VALPROIC ACID [Suspect]
     Dosage: 200-300MG
     Route: 048
     Dates: start: 20101210
  2. SEROQUEL XR [Suspect]
     Route: 048
     Dates: start: 20101210, end: 20101227
  3. CHONDROSULF [Concomitant]
     Indication: PRODUCT USED FOR UNKNOWN INDICATION
     Route: 065
  4. SEROQUEL XR [Suspect]
     Indication: BIPOLAR I DISORDER
     Dosage: 100-150MG DAILY
     Route: 048
     Dates: start: 20100315, end: 20101201
  5. SEROQUEL XR [Suspect]
     Route: 048
     Dates: start: 20101202
  6. NOVALGIN [Concomitant]
     Indication: PRODUCT USED FOR UNKNOWN INDICATION
     Route: 065
  7. IBEROGAST [Concomitant]
     Indication: PRODUCT USED FOR UNKNOWN INDICATION
     Route: 065
  8. VALPROIC ACID [Suspect]
     Indication: PRODUCT USED FOR UNKNOWN INDICATION
     Dosage: 200-300MG
     Route: 048
     Dates: start: 20101203, end: 20101209
  9. ATACAND [Suspect]
     Indication: PRODUCT USED FOR UNKNOWN INDICATION
     Dosage: 16/12.5MG
     Route: 048
     Dates: start: 20100917, end: 20110104
  10. SEROQUEL XR [Suspect]
     Route: 048
     Dates: start: 20101202, end: 20101209
  11. SEROQUEL XR [Suspect]
     Route: 048
     Dates: start: 20101228

REACTIONS (3)
  - CONFUSIONAL STATE [None]
  - HYPONATRAEMIA [None]
  - DISORIENTATION [None]
